FAERS Safety Report 9201787 (Version 2)
Quarter: 2013Q2

REPORT INFORMATION
  Report Type: Spontaneous
  Country: US (occurrence: None)
  Receive Date: 20130328
  Receipt Date: 20130403
  Transmission Date: 20140414
  Serious: Yes (Death, Hospitalization)
  Sender: FDA-Public Use
  Company Number: 2013STPI000100

PATIENT
  Age: 58 Year
  Sex: Female
  Weight: 159 kg

DRUGS (1)
  1. MATULANE [Suspect]
     Indication: HODGKIN^S DISEASE NODULAR SCLEROSIS
     Route: 048
     Dates: start: 20130227, end: 20130305

REACTIONS (2)
  - Unresponsive to stimuli [None]
  - Hypotension [None]
